FAERS Safety Report 13273516 (Version 2)
Quarter: 2017Q2

REPORT INFORMATION
  Report Type: Spontaneous
  Country: JP (occurrence: JP)
  Receive Date: 20170227
  Receipt Date: 20170529
  Transmission Date: 20170830
  Serious: Yes (Death, Other)
  Sender: FDA-Public Use
  Company Number: JP-BRISTOL-MYERS SQUIBB COMPANY-BMS-2017-016400

PATIENT
  Age: 77 Year
  Sex: Female

DRUGS (5)
  1. EDIROL [Concomitant]
     Active Substance: ELDECALCITOL
     Indication: OSTEOPOROSIS
     Dosage: 0.5 ?G, QD
     Route: 048
     Dates: end: 20170211
  2. FOLIAMIN [Concomitant]
     Active Substance: FOLIC ACID
     Indication: RHEUMATOID ARTHRITIS
     Dosage: 5 MG, QWK
     Route: 048
     Dates: end: 20170211
  3. ORENCIA [Suspect]
     Active Substance: ABATACEPT
     Indication: RHEUMATOID ARTHRITIS
     Dosage: 125 MG, QWK
     Route: 058
     Dates: start: 20170124
  4. RHEUMATREX [Suspect]
     Active Substance: METHOTREXATE SODIUM
     Indication: RHEUMATOID ARTHRITIS
     Dosage: 6 MG, QWK
     Route: 048
  5. PREDNISOLONE. [Suspect]
     Active Substance: PREDNISOLONE
     Indication: RHEUMATOID ARTHRITIS
     Dosage: 2 MG, QD
     Route: 048

REACTIONS (3)
  - Decubitus ulcer [Fatal]
  - Pulmonary hypertension [Fatal]
  - Sepsis [Fatal]

NARRATIVE: CASE EVENT DATE: 20170211
